FAERS Safety Report 6016805-X (Version None)
Quarter: 2008Q4

REPORT INFORMATION
  Report Type: 
  Country: None (occurrence: None)
  Receive Date: 20081222
  Receipt Date: 20081215
  Transmission Date: 20090506
  Serious: Yes (Hospitalization)
  Sender: FDA-Public Use
  Company Number: JP-ABBOTT-08P-087-0491112-00

PATIENT
  Sex: Male

DRUGS (7)
  1. HUMIRA [Suspect]
     Indication: RHEUMATOID ARTHRITIS
     Route: 058
     Dates: start: 20080807, end: 20081113
  2. EPALRESTAT [Concomitant]
     Indication: DIABETES MELLITUS
     Dosage: 150 MG DAILY
     Route: 048
     Dates: start: 20081203
  3. INSULIN LISPRO [Concomitant]
     Indication: DIABETES MELLITUS
     Dosage: 32 IU DAILY
     Route: 058
     Dates: start: 20080903
  4. CELECOXIB [Concomitant]
     Indication: RHEUMATOID ARTHRITIS
     Dosage: 200 MG DAILY
     Route: 048
     Dates: start: 20071115
  5. ECABET SODIUM HYDRATE [Concomitant]
     Indication: PROPHYLAXIS AGAINST GASTROINTESTINAL ULCER
     Dosage: 1.5 G DAILY
     Route: 048
     Dates: start: 20071115
  6. DICLOFENAC SODIUM [Concomitant]
     Indication: PAIN
     Dosage: 75 MG DAILY
     Route: 054
     Dates: start: 19981021
  7. ALENDRONATE SODIUM [Concomitant]
     Indication: OSTEOPOROSIS
     Dosage: 35 MG PER WEEK
     Route: 048
     Dates: start: 20070726

REACTIONS (3)
  - CHEST PAIN [None]
  - HERPES ZOSTER [None]
  - HYPOPHAGIA [None]
